FAERS Safety Report 18593862 (Version 4)
Quarter: 2022Q2

REPORT INFORMATION
  Report Type: Spontaneous
  Country: DE (occurrence: DE)
  Receive Date: 20201209
  Receipt Date: 20220530
  Transmission Date: 20220721
  Serious: Yes (Other)
  Sender: FDA-Public Use
  Company Number: DE-AMGEN-DEUNI2020190560

PATIENT
  Age: 50 Year
  Sex: Male
  Weight: 61 kg

DRUGS (36)
  1. IRINOTECAN [Suspect]
     Active Substance: IRINOTECAN
     Indication: Colorectal cancer metastatic
     Dosage: 313 MILLIGRAM
     Route: 065
     Dates: start: 20201014
  2. IRINOTECAN [Suspect]
     Active Substance: IRINOTECAN
     Dosage: 336 MILLIGRAM
     Route: 065
     Dates: start: 20220406
  3. LEUCOVORIN [Suspect]
     Active Substance: LEUCOVORIN
     Indication: Colorectal cancer metastatic
     Dosage: 696 MILLIGRAM
     Route: 065
     Dates: start: 20201014
  4. LEUCOVORIN [Suspect]
     Active Substance: LEUCOVORIN
     Dosage: 396 MILLIGRAM
     Route: 065
     Dates: start: 20201028
  5. LEUCOVORIN [Suspect]
     Active Substance: LEUCOVORIN
     Dosage: 696 MILLIGRAM
     Route: 065
     Dates: start: 20201111
  6. LEUCOVORIN [Suspect]
     Active Substance: LEUCOVORIN
     Dosage: 700  MILLIGRAM
     Route: 065
     Dates: start: 20201125
  7. LEUCOVORIN [Suspect]
     Active Substance: LEUCOVORIN
     Dosage: 696 MILLIGRAM
     Route: 065
     Dates: start: 20201223
  8. LEUCOVORIN [Suspect]
     Active Substance: LEUCOVORIN
     Dosage: 700  MILLIGRAM
     Route: 065
     Dates: start: 20210324
  9. LEUCOVORIN [Suspect]
     Active Substance: LEUCOVORIN
     Dosage: 696 MILLIGRAM
     Route: 065
     Dates: start: 20210526
  10. LEUCOVORIN [Suspect]
     Active Substance: LEUCOVORIN
     Dosage: 700 MILLIGRAM
     Route: 065
     Dates: start: 20210609
  11. LEUCOVORIN [Suspect]
     Active Substance: LEUCOVORIN
     Dosage: 750 MILLIGRAM
     Route: 065
     Dates: start: 20220406
  12. FLUOROURACIL [Suspect]
     Active Substance: FLUOROURACIL
     Indication: Colorectal cancer metastatic
     Dosage: 696 MILLIGRAM
     Route: 040
     Dates: start: 20201014
  13. FLUOROURACIL [Suspect]
     Active Substance: FLUOROURACIL
     Dosage: 4176 MILLIGRAM
     Route: 042
     Dates: start: 20201014
  14. FLUOROURACIL [Suspect]
     Active Substance: FLUOROURACIL
     Dosage: 396 MILLIGRAM
     Route: 040
     Dates: start: 20201028
  15. FLUOROURACIL [Suspect]
     Active Substance: FLUOROURACIL
     Dosage: 696 MILLIGRAM
     Route: 040
     Dates: start: 20201111
  16. FLUOROURACIL [Suspect]
     Active Substance: FLUOROURACIL
     Dosage: 700 MILLIGRAM
     Route: 040
     Dates: start: 20201125
  17. FLUOROURACIL [Suspect]
     Active Substance: FLUOROURACIL
     Dosage: 4180  MILLIGRAM
     Route: 042
     Dates: start: 20201125
  18. FLUOROURACIL [Suspect]
     Active Substance: FLUOROURACIL
     Dosage: 696 MILLIGRAM
     Route: 040
     Dates: start: 20201223
  19. FLUOROURACIL [Suspect]
     Active Substance: FLUOROURACIL
     Dosage: 4176 MILLIGRAM
     Route: 042
     Dates: start: 20201223
  20. FLUOROURACIL [Suspect]
     Active Substance: FLUOROURACIL
     Dosage: 700 MILLIGRAM
     Route: 040
     Dates: start: 20210324
  21. FLUOROURACIL [Suspect]
     Active Substance: FLUOROURACIL
     Dosage: 4180 MILLIGRAM
     Route: 042
     Dates: start: 20210324
  22. FLUOROURACIL [Suspect]
     Active Substance: FLUOROURACIL
     Dosage: 696 MILLIGRAM
     Route: 040
     Dates: start: 20210526
  23. FLUOROURACIL [Suspect]
     Active Substance: FLUOROURACIL
     Dosage: 4176 MILLIGRAM
     Route: 042
     Dates: start: 20210526
  24. FLUOROURACIL [Suspect]
     Active Substance: FLUOROURACIL
     Dosage: 700 MILLIGRAM
     Route: 040
     Dates: start: 20210609
  25. FLUOROURACIL [Suspect]
     Active Substance: FLUOROURACIL
     Dosage: 4180 MILLIGRAM
     Route: 042
     Dates: start: 20210609
  26. FLUOROURACIL [Suspect]
     Active Substance: FLUOROURACIL
     Dosage: 180 MILLIGRAM
     Route: 042
     Dates: start: 20211110
  27. FLUOROURACIL [Suspect]
     Active Substance: FLUOROURACIL
     Dosage: 4180 MILLIGRAM
     Route: 042
     Dates: start: 20211124
  28. FLUOROURACIL [Suspect]
     Active Substance: FLUOROURACIL
     Dosage: 4500 MILLIGRAM
     Route: 042
     Dates: start: 20220406
  29. FLUOROURACIL [Suspect]
     Active Substance: FLUOROURACIL
     Dosage: 750 MILLIGRAM
     Route: 042
     Dates: start: 20220406
  30. VECTIBIX [Suspect]
     Active Substance: PANITUMUMAB
     Indication: Colorectal cancer metastatic
     Dosage: 366 MILLIGRAM
     Route: 042
     Dates: start: 20201014
  31. VECTIBIX [Suspect]
     Active Substance: PANITUMUMAB
     Dosage: 370 MILLIGRAM
     Route: 042
     Dates: start: 20201125
  32. VECTIBIX [Suspect]
     Active Substance: PANITUMUMAB
     Dosage: 366 MILLIGRAM
     Route: 042
     Dates: start: 20201223
  33. VECTIBIX [Suspect]
     Active Substance: PANITUMUMAB
     Dosage: 370 MILLIGRAM
     Route: 042
     Dates: start: 20210324
  34. VECTIBIX [Suspect]
     Active Substance: PANITUMUMAB
     Dosage: 440 MILLIGRAM
     Route: 042
     Dates: start: 20220406
  35. DOXYCYCLIN RATIOPHARM [Concomitant]
     Indication: Rash
     Dosage: 200 MILLIGRAM, ONCE A DAY (100 MILLIGRAM, TWO TIMES A DAY)
     Route: 048
     Dates: start: 20201014
  36. DOXYCYCLIN RATIOPHARM [Concomitant]
     Dosage: 200 MILLIGRAM, ONCE A DAY (100 MILLIGRAM, TWO TIMES A DAY)
     Route: 048
     Dates: start: 20201027

REACTIONS (2)
  - Dermatitis bullous [Unknown]
  - Rash [Recovered/Resolved]

NARRATIVE: CASE EVENT DATE: 20201111
